FAERS Safety Report 15710294 (Version 1)
Quarter: 2018Q4

REPORT INFORMATION
  Report Type: Spontaneous
  Country: US (occurrence: US)
  Receive Date: 20181211
  Receipt Date: 20181211
  Transmission Date: 20190205
  Serious: Yes (Hospitalization, Other)
  Sender: FDA-Public Use
  Company Number: US-OTSUKA-2018_038444

PATIENT
  Sex: Female

DRUGS (1)
  1. SAMSCA [Suspect]
     Active Substance: TOLVAPTAN
     Indication: HYPONATRAEMIA
     Dosage: 15 MG, QD
     Route: 048
     Dates: start: 2017

REACTIONS (9)
  - Head injury [Unknown]
  - Fall [Unknown]
  - Blood sodium decreased [Unknown]
  - Incorrect product administration duration [Unknown]
  - Vomiting [Unknown]
  - Asthenia [Unknown]
  - Inability to afford medication [Unknown]
  - Seizure [Unknown]
  - Product dose omission [Unknown]
